FAERS Safety Report 10074272 (Version 1)
Quarter: 2014Q2

REPORT INFORMATION
  Report Type: Spontaneous
  Country: US (occurrence: US)
  Receive Date: 20140411
  Receipt Date: 20140411
  Transmission Date: 20141212
  Serious: No
  Sender: FDA-Public Use
  Company Number: US-SANOFI-AVENTIS-2013SA040620

PATIENT
  Age: 70 Year
  Sex: Female

DRUGS (2)
  1. ALLEGRA D [Suspect]
     Indication: RESPIRATORY TRACT CONGESTION
     Dosage: DOSE:60/120 MG?FREQUENCY:Q12HR
     Route: 048
     Dates: end: 20130401
  2. PREDNISONE [Concomitant]

REACTIONS (1)
  - Blood pressure increased [Unknown]
